FAERS Safety Report 5962375-1 (Version None)
Quarter: 2008Q4

REPORT INFORMATION
  Report Type: 
  Country: None (occurrence: None)
  Receive Date: 20081121
  Receipt Date: 20081113
  Transmission Date: 20090506
  Serious: Yes (Hospitalization, Other)
  Sender: FDA-Public Use
  Company Number: US-AMGEN-QUU318963

PATIENT
  Sex: Female

DRUGS (1)
  1. ENBREL [Suspect]
     Indication: RHEUMATOID ARTHRITIS
     Route: 058
     Dates: start: 20001201

REACTIONS (5)
  - AORTIC DISSECTION [None]
  - CARDIAC ARREST [None]
  - RHEUMATOID ARTHRITIS [None]
  - STENT PLACEMENT [None]
  - SYNOVIAL CYST [None]
